FAERS Safety Report 20749768 (Version 1)
Quarter: 2022Q2

REPORT INFORMATION
  Report Type: Spontaneous
  Country: US (occurrence: None)
  Receive Date: 20220425
  Receipt Date: 20220425
  Transmission Date: 20220721
  Serious: No
  Sender: FDA-Public Use
  Company Number: None

PATIENT
  Sex: Female

DRUGS (2)
  1. TIMOLOL MALEATE [Suspect]
     Active Substance: TIMOLOL MALEATE
  2. BRIMONIDINE [Suspect]
     Active Substance: BRIMONIDINE TARTRATE

REACTIONS (1)
  - Drug ineffective [None]
